FAERS Safety Report 6035207-3 (Version None)
Quarter: 2009Q1

REPORT INFORMATION
  Report Type: 
  Country: None (occurrence: None)
  Receive Date: 20090109
  Receipt Date: 20081215
  Transmission Date: 20090719
  Serious: Yes (Life-Threatening, Hospitalization)
  Sender: FDA-Public Use
  Company Number: 200828573GPV

PATIENT
  Age: 60 Year
  Sex: Male

DRUGS (3)
  1. CAMPATH [Suspect]
     Indication: CHRONIC LYMPHOCYTIC LEUKAEMIA
     Dosage: 30 MG SUBCUTANEOUS
     Route: 058
     Dates: start: 20071218, end: 20071220
  2. FLUDARA (FLUDARABNIE PHOSPHATE) [Suspect]
     Indication: CHRONIC LYMPHOCYTIC LEUKAEMIA
     Dosage: 40 MG/M2 ORAL
     Route: 048
     Dates: start: 20071218, end: 20071220
  3. CYCLOPHOSPHAMIDE [Suspect]
     Indication: CHRONIC LYMPHOCYTIC LEUKAEMIA
     Dosage: 450 MG ORAL
     Route: 048
     Dates: start: 20071218, end: 20071220

REACTIONS (5)
  - INTRACRANIAL PRESSURE INCREASED [None]
  - MENINGITIS BACTERIAL [None]
  - NEUTROPENIA [None]
  - SEPSIS [None]
  - SUBDURAL HAEMATOMA [None]
